FAERS Safety Report 12099486 (Version 1)
Quarter: 2016Q1

REPORT INFORMATION
  Report Type: Spontaneous
  Country: US (occurrence: None)
  Receive Date: 20160219
  Receipt Date: 20160219
  Transmission Date: 20160526
  Serious: Yes (Life-Threatening, Hospitalization, Disabling)
  Sender: FDA-Public Use
  Company Number: None

PATIENT
  Age: 55 Year
  Sex: Female
  Weight: 228 kg

DRUGS (14)
  1. ACCUPRIL [Concomitant]
     Active Substance: QUINAPRIL HYDROCHLORIDE
  2. COREG [Concomitant]
     Active Substance: CARVEDILOL
  3. CETIRIZINE [Concomitant]
     Active Substance: CETIRIZINE HYDROCHLORIDE
  4. FLONASE [Concomitant]
     Active Substance: FLUTICASONE PROPIONATE
  5. OXYCODONE [Concomitant]
     Active Substance: OXYCODONE
  6. PEGASYS [Suspect]
     Active Substance: PEGINTERFERON ALFA-2A
     Indication: HEPATITIS C
     Dosage: 1 SHOT WEEKLY
     Dates: start: 201206, end: 201212
  7. BUMETANIDE. [Concomitant]
     Active Substance: BUMETANIDE
  8. POTASSIUM CHLORIDE. [Concomitant]
     Active Substance: POTASSIUM CHLORIDE
  9. SIMVASTATIN. [Concomitant]
     Active Substance: SIMVASTATIN
  10. XANAX [Concomitant]
     Active Substance: ALPRAZOLAM
  11. RIBAVIRIN (PILLS) [Suspect]
     Active Substance: RIBAVIRIN
     Indication: HEPATITIS C
     Dosage: 2 PILLS DAILY
     Route: 048
  12. LEXAPRO [Concomitant]
     Active Substance: ESCITALOPRAM OXALATE
  13. SYNTHROID [Concomitant]
     Active Substance: LEVOTHYROXINE SODIUM
  14. TRIMETHOPRIM. [Concomitant]
     Active Substance: TRIMETHOPRIM

REACTIONS (11)
  - Dizziness [None]
  - Fatigue [None]
  - Apparent death [None]
  - Kidney infection [None]
  - Syncope [None]
  - Heart rate increased [None]
  - Thyroid disorder [None]
  - Decreased appetite [None]
  - Myocardial infarction [None]
  - Cardiac disorder [None]
  - Influenza [None]

NARRATIVE: CASE EVENT DATE: 201206
